FAERS Safety Report 17896548 (Version 1)
Quarter: 2020Q2

REPORT INFORMATION
  Report Type: Spontaneous
  Country: US (occurrence: US)
  Receive Date: 20200615
  Receipt Date: 20200615
  Transmission Date: 20200714
  Serious: No
  Sender: FDA-Public Use
  Company Number: US-SUNNY_PHARMTECH-USA-POI0573202000249

PATIENT
  Age: 84 Year
  Sex: Female

DRUGS (1)
  1. NITROFURANTOIN CAPSULES [Suspect]
     Active Substance: NITROFURANTOIN
     Indication: PROPHYLAXIS URINARY TRACT INFECTION
     Dates: start: 202001

REACTIONS (2)
  - Fatigue [Unknown]
  - Myalgia [Recovering/Resolving]

NARRATIVE: CASE EVENT DATE: 202001
